FAERS Safety Report 6272660-4 (Version None)
Quarter: 2009Q3

REPORT INFORMATION
  Report Type: 
  Country: None (occurrence: None)
  Receive Date: 20090717
  Receipt Date: 20090715
  Transmission Date: 20100115
  Serious: No
  Sender: FDA-Public Use
  Company Number: US-B.I. PHARMACEUTICALS,INC./RIDGEFIELD-2009-BP-00394BP

PATIENT
  Sex: Female

DRUGS (10)
  1. SPIRIVA [Suspect]
     Indication: EMPHYSEMA
     Dosage: 18 MCG
     Route: 055
     Dates: start: 20081218, end: 20090401
  2. SPIRIVA [Suspect]
     Indication: RESPIRATORY FUME INHALATION DISORDER
  3. SPIRIVA [Suspect]
     Indication: CHRONIC OBSTRUCTIVE PULMONARY DISEASE
  4. CLARITIN [Concomitant]
     Indication: MULTIPLE ALLERGIES
  5. SUDAFED 12 HOUR [Concomitant]
     Indication: MULTIPLE ALLERGIES
  6. ASPIRIN [Concomitant]
  7. CELEBREX [Concomitant]
  8. FOSAMAX [Concomitant]
  9. VIT./SUPPLEMENTS [Concomitant]
  10. ZOCOR [Concomitant]
     Indication: CARDIOVASCULAR EVENT PROPHYLAXIS

REACTIONS (4)
  - INCREASED UPPER AIRWAY SECRETION [None]
  - SPEECH DISORDER [None]
  - THROAT IRRITATION [None]
  - THROAT TIGHTNESS [None]
